FAERS Safety Report 19238376 (Version 2)
Quarter: 2021Q2

REPORT INFORMATION
  Report Type: Report from Study
  Country: ES (occurrence: ES)
  Receive Date: 20210510
  Receipt Date: 20210518
  Transmission Date: 20210717
  Serious: Yes (Hospitalization, Other)
  Sender: FDA-Public Use
  Company Number: ES-ROCHE-2823715

PATIENT
  Age: 81 Year
  Sex: Female
  Weight: 52.2 kg

DRUGS (2)
  1. CABOZANTINIB [Suspect]
     Active Substance: CABOZANTINIB
     Indication: NEUROENDOCRINE TUMOUR
     Route: 048
     Dates: start: 20200208
  2. ATEZOLIZUMAB. [Suspect]
     Active Substance: ATEZOLIZUMAB
     Indication: NEUROENDOCRINE TUMOUR
     Route: 065
     Dates: start: 20210208

REACTIONS (7)
  - Stomatitis [Unknown]
  - Transaminases increased [Not Recovered/Not Resolved]
  - Pyrexia [Not Recovered/Not Resolved]
  - Urinary tract infection [Unknown]
  - Pancytopenia [Unknown]
  - Fatigue [Unknown]
  - Hepatotoxicity [Unknown]

NARRATIVE: CASE EVENT DATE: 20210223
